FAERS Safety Report 4338254-2 (Version None)
Quarter: 2004Q2

REPORT INFORMATION
  Report Type: 
  Country: None (occurrence: None)
  Receive Date: 20040413
  Receipt Date: 20040413
  Transmission Date: 20050107
  Serious: Yes (Life-Threatening, Hospitalization)
  Sender: FDA-Public Use
  Company Number: None

PATIENT
  Age: 42 Year
  Sex: Female
  Weight: 79 kg

DRUGS (3)
  1. INFLIXIMAB [Suspect]
     Indication: PSORIATIC ARTHROPATHY
     Dosage: 300-400 MG EVERY 6 WK IV
     Route: 042
     Dates: start: 20020201, end: 20040217
  2. INFLIXIMAB [Suspect]
     Indication: RHEUMATOID ARTHRITIS
     Dosage: 300-400 MG EVERY 6 WK IV
     Route: 042
     Dates: start: 20020201, end: 20040217
  3. PREDNISONE [Suspect]

REACTIONS (5)
  - ACUTE MYOCARDIAL INFARCTION [None]
  - IMPLANT SITE INFECTION [None]
  - RENAL FAILURE ACUTE [None]
  - SEPSIS [None]
  - STAPHYLOCOCCAL INFECTION [None]
